FAERS Safety Report 15374716 (Version 1)
Quarter: 2018Q3

REPORT INFORMATION
  Report Type: Report from Study
  Country: MX (occurrence: MX)
  Receive Date: 20180912
  Receipt Date: 20180912
  Transmission Date: 20181010
  Serious: Yes (Hospitalization)
  Sender: FDA-Public Use
  Company Number: MX-EMD SERONO-E2B_90056774

PATIENT
  Age: 40 Year
  Sex: Female

DRUGS (3)
  1. REBIF [Suspect]
     Active Substance: INTERFERON BETA-1A
     Route: 058
     Dates: end: 20180821
  2. REBIF [Suspect]
     Active Substance: INTERFERON BETA-1A
     Indication: MULTIPLE SCLEROSIS
     Route: 058
     Dates: start: 20150830
  3. TEGRETOL [Concomitant]
     Active Substance: CARBAMAZEPINE
     Indication: VERTIGO

REACTIONS (6)
  - Sensory loss [Not Recovered/Not Resolved]
  - Ocular discomfort [Recovered/Resolved]
  - Lacrimal disorder [Not Recovered/Not Resolved]
  - Eye pain [Recovered/Resolved]
  - Photophobia [Not Recovered/Not Resolved]
  - Headache [Recovered/Resolved]

NARRATIVE: CASE EVENT DATE: 201808
